FAERS Safety Report 5153363-6 (Version None)
Quarter: 2006Q4

REPORT INFORMATION
  Report Type: 
  Country: None (occurrence: None)
  Receive Date: 20061117
  Receipt Date: 20061114
  Transmission Date: 20070319
  Serious: Yes (Hospitalization)
  Sender: FDA-Public Use
  Company Number: FR-BRISTOL-MYERS SQUIBB COMPANY-13578711

PATIENT
  Age: 3 Year
  Sex: Female
  Weight: 13 kg

DRUGS (6)
  1. ETOPOSIDE [Suspect]
     Route: 042
     Dates: start: 20051227, end: 20060226
  2. CISPLATIN [Suspect]
     Route: 042
     Dates: start: 20060106, end: 20060216
  3. CYCLOPHOSPHAMIDE [Suspect]
     Route: 042
     Dates: start: 20060116, end: 20060225
  4. VINCRISTINE SULFATE [Suspect]
     Route: 042
     Dates: start: 20051227, end: 20060310
  5. CARBOPLATIN [Suspect]
     Route: 042
     Dates: start: 20051227, end: 20060206
  6. NEUPOGEN [Suspect]
     Indication: CHEMOTHERAPY
     Route: 058
     Dates: start: 20051230, end: 20060310

REACTIONS (7)
  - BLOOD CREATININE INCREASED [None]
  - CYSTITIS HAEMORRHAGIC [None]
  - HAEMATURIA [None]
  - HYPERTENSION [None]
  - PROTEINURIA [None]
  - PULMONARY OEDEMA [None]
  - RENAL FAILURE ACUTE [None]
